FAERS Safety Report 8242926-7 (Version None)
Quarter: 2012Q1

REPORT INFORMATION
  Report Type: 
  Country: None (occurrence: None)
  Receive Date: 20120329
  Receipt Date: 20120329
  Transmission Date: 20120608
  Serious: Yes (Life-Threatening, Other)
  Sender: FDA-Public Use
  Company Number: None

PATIENT
  Sex: Male
  Weight: 88.45 kg

DRUGS (2)
  1. OXCARBAZEPINE [Concomitant]
  2. OXCARBAZEPINE [Suspect]
     Indication: CONVULSION
     Dosage: 1 1/2
     Route: 048

REACTIONS (3)
  - DRUG LEVEL DECREASED [None]
  - PRODUCT SUBSTITUTION ISSUE [None]
  - CONVULSION [None]
